FAERS Safety Report 5854742-1 (Version None)
Quarter: 2008Q3

REPORT INFORMATION
  Report Type: 
  Country: None (occurrence: None)
  Receive Date: 20080822
  Receipt Date: 20080107
  Transmission Date: 20090109
  Serious: No
  Sender: FDA-Public Use
  Company Number: US-ABBOTT-08P-163-0432901-00

PATIENT
  Sex: Female
  Weight: 94.432 kg

DRUGS (2)
  1. SYNTHROID [Suspect]
     Indication: AUTOIMMUNE THYROIDITIS
     Route: 048
     Dates: start: 19970101, end: 20070101
  2. SYNTHROID [Suspect]
     Route: 048
     Dates: start: 20070101

REACTIONS (3)
  - ABDOMINAL DISTENSION [None]
  - BLOOD THYROID STIMULATING HORMONE INCREASED [None]
  - DYSPEPSIA [None]
